FAERS Safety Report 16899447 (Version 1)
Quarter: 2019Q4

REPORT INFORMATION
  Report Type: Spontaneous
  Country: CN (occurrence: CN)
  Receive Date: 20191009
  Receipt Date: 20191009
  Transmission Date: 20200122
  Serious: Yes (Other)
  Sender: FDA-Public Use
  Company Number: CN-ROCHE-2426845

PATIENT
  Age: 33 Year
  Sex: Female
  Weight: 57 kg

DRUGS (2)
  1. PEGASYS [Suspect]
     Active Substance: PEGINTERFERON ALFA-2A
     Indication: CHRONIC HEPATITIS B
     Route: 058
     Dates: start: 20190624
  2. PEGASYS [Suspect]
     Active Substance: PEGINTERFERON ALFA-2A
     Indication: ARTHRITIS VIRAL

REACTIONS (1)
  - White blood cell count decreased [Unknown]

NARRATIVE: CASE EVENT DATE: 20190902
